FAERS Safety Report 5248580-0 (Version None)
Quarter: 2007Q1

REPORT INFORMATION
  Report Type: 
  Country: None (occurrence: None)
  Receive Date: 20070227
  Receipt Date: 20070220
  Transmission Date: 20070707
  Serious: Yes (Other)
  Sender: FDA-Public Use
  Company Number: FR-PFIZER INC-2007013806

PATIENT
  Sex: Female

DRUGS (2)
  1. ARTHROTEC [Suspect]
     Dosage: TEXT:10 TABLETS
  2. TETRAZEPAM [Suspect]
     Dosage: TEXT:5 TABLETS

REACTIONS (2)
  - INTENTIONAL OVERDOSE [None]
  - SELF-INJURIOUS IDEATION [None]
